FAERS Safety Report 14401156 (Version 1)
Quarter: 2018Q1

REPORT INFORMATION
  Report Type: Spontaneous
  Country: US (occurrence: US)
  Receive Date: 20180117
  Receipt Date: 20180117
  Transmission Date: 20180509
  Serious: No
  Sender: FDA-Public Use
  Company Number: US-PFIZER INC-2018018376

PATIENT
  Age: 48 Year
  Sex: Male

DRUGS (4)
  1. GABAPENTIN. [Suspect]
     Active Substance: GABAPENTIN
     Indication: PHANTOM PAIN
  2. GABAPENTIN. [Suspect]
     Active Substance: GABAPENTIN
     Indication: NEUROPATHY PERIPHERAL
  3. GABAPENTIN. [Suspect]
     Active Substance: GABAPENTIN
     Indication: PAIN IN EXTREMITY
  4. GABAPENTIN. [Suspect]
     Active Substance: GABAPENTIN
     Indication: SPINAL PAIN
     Dosage: 75MG CAPSULE, TWICE A DAY
     Route: 048

REACTIONS (6)
  - Irritability [Unknown]
  - Post-traumatic stress disorder [Recovered/Resolved]
  - Condition aggravated [Recovered/Resolved]
  - Feeling abnormal [Recovered/Resolved]
  - Anxiety [Unknown]
  - Product use in unapproved indication [Unknown]
